FAERS Safety Report 8657899 (Version 3)
Quarter: 2013Q4

REPORT INFORMATION
  Report Type: Spontaneous
  Country: US (occurrence: US)
  Receive Date: 20120710
  Receipt Date: 20131205
  Transmission Date: 20140711
  Serious: Yes (Hospitalization, Other)
  Sender: FDA-Public Use
  Company Number: US-PFIZER INC-2012161477

PATIENT
  Age: 26 Year
  Sex: Male

DRUGS (5)
  1. CHANTIX [Suspect]
     Indication: SMOKING CESSATION THERAPY
     Dosage: UNK
     Dates: start: 20110901, end: 20111101
  2. CHANTIX [Suspect]
     Dosage: STARTING PACK 2X/DAY
     Dates: start: 20110916
  3. CHANTIX [Suspect]
     Dosage: 1 MG, 2X/DAY CONTINUING MONTH PACK
     Route: 048
     Dates: start: 20111011
  4. RISPERDAL [Concomitant]
     Dosage: 1 MG, 2X/DAY
     Route: 048
  5. VIIBRYD [Concomitant]
     Dosage: 40 MG, DAILY

REACTIONS (4)
  - Intentional overdose [Unknown]
  - Suicide attempt [Unknown]
  - Aggression [Unknown]
  - Mental disorder [Unknown]
